FAERS Safety Report 4388238-3 (Version None)
Quarter: 2004Q2

REPORT INFORMATION
  Report Type: 
  Country: None (occurrence: None)
  Receive Date: 20040625
  Receipt Date: 20040616
  Transmission Date: 20050107
  Serious: Yes (Death)
  Sender: FDA-Public Use
  Company Number: USA-2003-0012090

PATIENT
  Age: 57 Year
  Sex: Male

DRUGS (4)
  1. MORPHINE SULFATE [Suspect]
     Dosage: UNK
     Route: 065
  2. OXYCODONE HCL [Suspect]
     Dosage: UNK
     Route: 065
  3. CODEINE (CODEINE) [Suspect]
     Dosage: UNK
     Route: 065
  4. PROMETHAZINE [Suspect]
     Dosage: UNK
     Route: 065

REACTIONS (4)
  - CYANOSIS [None]
  - MULTIPLE DRUG OVERDOSE [None]
  - VICTIM OF HOMICIDE [None]
  - VOMITING [None]
